FAERS Safety Report 10510083 (Version 3)
Quarter: 2015Q2

REPORT INFORMATION
  Report Type: Spontaneous
  Country: US (occurrence: None)
  Receive Date: 20141008
  Receipt Date: 20150423
  Transmission Date: 20150821
  Serious: Yes (Other)
  Sender: FDA-Public Use
  Company Number: 2014-20433

PATIENT
  Age: 90 Year
  Sex: Female

DRUGS (1)
  1. EYLEA [Suspect]
     Active Substance: AFLIBERCEPT
     Indication: AGE-RELATED MACULAR DEGENERATION
     Route: 031
     Dates: start: 20131022, end: 20140101

REACTIONS (5)
  - Cataract [None]
  - Blindness [None]
  - Drug dose omission [None]
  - Needle issue [None]
  - Drug administration error [None]

NARRATIVE: CASE EVENT DATE: 20140926
